FAERS Safety Report 21087449 (Version 1)
Quarter: 2022Q3

REPORT INFORMATION
  Report Type: Spontaneous
  Country: JP (occurrence: JP)
  Receive Date: 20220715
  Receipt Date: 20220715
  Transmission Date: 20221027
  Serious: Yes (Hospitalization, Other)
  Sender: FDA-Public Use
  Company Number: JP-CPL-002970

PATIENT
  Age: 86 Year
  Sex: Male

DRUGS (10)
  1. VERAPAMIL [Suspect]
     Active Substance: VERAPAMIL HYDROCHLORIDE
     Indication: Atrial flutter
  2. CARVEDILOL [Suspect]
     Active Substance: CARVEDILOL
     Indication: Atrial flutter
  3. APIXABAN [Concomitant]
     Active Substance: APIXABAN
     Indication: Atrial flutter
  4. LOSARTAN POTASSIUM [Concomitant]
     Active Substance: LOSARTAN POTASSIUM
     Indication: Hypertension
     Route: 048
  5. VONOPRAZAN [Concomitant]
     Active Substance: VONOPRAZAN
     Indication: Gastric ulcer
  6. BICALUTAMIDE [Concomitant]
     Active Substance: BICALUTAMIDE
     Indication: Prostate cancer
  7. BICALUTAMIDE [Concomitant]
     Active Substance: BICALUTAMIDE
     Indication: Prostate cancer
  8. CELECOXIB [Concomitant]
     Active Substance: CELECOXIB
     Indication: Osteoarthritis
  9. MIRABEGRON [Concomitant]
     Active Substance: MIRABEGRON
  10. LACTOBACILLUS ACIDOPHILUS [Concomitant]
     Active Substance: LACTOBACILLUS ACIDOPHILUS
     Dosage: THREE TIMES DAILY

REACTIONS (3)
  - BRASH syndrome [Recovering/Resolving]
  - Toxicity to various agents [Unknown]
  - Cardiac amyloidosis [Recovering/Resolving]
